FAERS Safety Report 9640664 (Version 2)
Quarter: 2013Q4

REPORT INFORMATION
  Report Type: Spontaneous
  Country: US (occurrence: None)
  Receive Date: 20131021
  Receipt Date: 20131107
  Transmission Date: 20140711
  Serious: Yes (Death)
  Sender: FDA-Public Use
  Company Number: 2013PL000172

PATIENT
  Age: 83 Year
  Sex: Female

DRUGS (5)
  1. LOTRONEX (ALOSETRON HYDROCHLORIDE) [Suspect]
     Indication: IRRITABLE BOWEL SYNDROME
     Route: 048
     Dates: end: 20130507
  2. PLAVIX [Concomitant]
  3. DIGOXIN [Concomitant]
  4. VALIUM [Suspect]
  5. PEPCID AC [Concomitant]

REACTIONS (3)
  - Megacolon [None]
  - Myocardial infarction [None]
  - Clostridium difficile infection [None]
